FAERS Safety Report 11820362 (Version 1)
Quarter: 2015Q4

REPORT INFORMATION
  Report Type: Spontaneous
  Country: US (occurrence: US)
  Receive Date: 20151210
  Receipt Date: 20151210
  Transmission Date: 20160305
  Serious: No
  Sender: FDA-Public Use
  Company Number: US-EMD SERONO-8057651

PATIENT

DRUGS (1)
  1. SAIZEN [Suspect]
     Active Substance: SOMATROPIN
     Indication: PRODUCT USED FOR UNKNOWN INDICATION

REACTIONS (1)
  - Drug hypersensitivity [Not Recovered/Not Resolved]
